FAERS Safety Report 18261516 (Version 1)
Quarter: 2020Q3

REPORT INFORMATION
  Report Type: Spontaneous
  Country: FR (occurrence: FR)
  Receive Date: 20200914
  Receipt Date: 20200914
  Transmission Date: 20201103
  Serious: Yes (Hospitalization)
  Sender: FDA-Public Use
  Company Number: FR-TEVA-2020-FR-1826174

PATIENT
  Age: 62 Year
  Sex: Male
  Weight: 75 kg

DRUGS (2)
  1. LINEZOLIDE [Suspect]
     Active Substance: LINEZOLID
     Indication: DEVICE RELATED SEPSIS
     Dosage: 1200 MG
     Route: 048
     Dates: start: 20200622, end: 20200810
  2. DOXYCYCLINE. [Suspect]
     Active Substance: DOXYCYCLINE
     Indication: DEVICE RELATED SEPSIS
     Dosage: 200 MG
     Route: 048
     Dates: start: 20200622, end: 20200810

REACTIONS (1)
  - Normocytic anaemia [Not Recovered/Not Resolved]

NARRATIVE: CASE EVENT DATE: 20200727
